FAERS Safety Report 4888176-3 (Version None)
Quarter: 2006Q1

REPORT INFORMATION
  Report Type: 
  Country: None (occurrence: None)
  Receive Date: 20060119
  Receipt Date: 20060106
  Transmission Date: 20060701
  Serious: Yes (Hospitalization, Other)
  Sender: FDA-Public Use
  Company Number: 2006006059

PATIENT
  Sex: Male
  Weight: 102.0593 kg

DRUGS (2)
  1. CELEBREX [Suspect]
     Indication: ARTHRITIS
     Dosage: 200 MG (200 MG 1 IN 1D)
     Dates: end: 20060103
  2. BEXTRA [Suspect]
     Indication: ARTHRITIS
     Dosage: 10 MG (10 MG 1 IN 1D)

REACTIONS (3)
  - ARTHRITIS INFECTIVE [None]
  - BOWEL SOUNDS ABNORMAL [None]
  - DIARRHOEA [None]
